FAERS Safety Report 9409466 (Version 1)
Quarter: 2013Q3

REPORT INFORMATION
  Report Type: Spontaneous
  Country: US (occurrence: US)
  Receive Date: 20130719
  Receipt Date: 20130719
  Transmission Date: 20140515
  Serious: Yes (Death)
  Sender: FDA-Public Use
  Company Number: US-UCBSA-092187

PATIENT
  Sex: 0

DRUGS (1)
  1. ALPRAZOLAM [Suspect]

REACTIONS (1)
  - Accidental overdose [Fatal]
